FAERS Safety Report 4824579-0 (Version None)
Quarter: 2005Q4

REPORT INFORMATION
  Report Type: 
  Country: None (occurrence: None)
  Receive Date: 20051108
  Receipt Date: 20051024
  Transmission Date: 20060501
  Serious: Yes (Death, Hospitalization)
  Sender: FDA-Public Use
  Company Number: EWC051046568

PATIENT
  Age: 80 Year
  Sex: Female

DRUGS (4)
  1. TERIPARATIDE [Suspect]
     Indication: OSTEOPOROSIS
     Dosage: 20 UG/ 1 DAY
     Dates: start: 20050628
  2. OMEPRAZOLE [Concomitant]
  3. ANTAGEL [Concomitant]
  4. MOTILIUM (DOMPERIDONE MALEATE) [Concomitant]

REACTIONS (2)
  - PANCREATIC CARCINOMA METASTATIC [None]
  - RESPIRATORY FAILURE [None]
